FAERS Safety Report 4273748-X (Version None)
Quarter: 2004Q1

REPORT INFORMATION
  Report Type: 
  Country: None (occurrence: None)
  Receive Date: 20040114
  Receipt Date: 20031229
  Transmission Date: 20041129
  Serious: Yes (Hospitalization)
  Sender: FDA-Public Use
  Company Number: 2002-BP-01311NB (1)

PATIENT
  Age: 80 Year
  Sex: Female

DRUGS (12)
  1. MEXITIL [Suspect]
     Indication: DIABETIC NEUROPATHY
     Dosage: 300 MG
     Route: 048
     Dates: start: 20010718, end: 20011210
  2. EUGLUCON (GLIBENCLAMIDE) [Concomitant]
  3. HACHIMIGAN (HACHIMIGAN) [Concomitant]
  4. CINALONG (CILNIDIPINE) [Concomitant]
  5. TOWAMIN (ATENOLOL) [Concomitant]
  6. RENIVEZE (ENALAPRIL MALEATE) [Concomitant]
  7. CILOSTATE (CILOSTAZOL) [Concomitant]
  8. CERTA (CERIVASTATIN) [Concomitant]
  9. MEVALOTIN (TRAVASTATIN SODIUM) [Concomitant]
  10. NABOAL - SR (KAR) [Concomitant]
  11. CYTOTEC [Concomitant]
  12. BLOPRESS (CANDESARTAN CILEXETIL) [Concomitant]

REACTIONS (2)
  - BLOOD LACTATE DEHYDROGENASE INCREASED [None]
  - GASTRIC CANCER [None]
